FAERS Safety Report 8845429 (Version 1)
Quarter: 2012Q4

REPORT INFORMATION
  Report Type: Spontaneous
  Country: US (occurrence: None)
  Receive Date: 20121015
  Receipt Date: 20121015
  Transmission Date: 20130627
  Serious: Yes (Other)
  Sender: FDA-Public Use
  Company Number: USA/USA/12/0026181

PATIENT
  Age: 45 Year

DRUGS (1)
  1. QUETIAPINE FUMARATE [Suspect]
     Indication: PROPHYLAXIS

REACTIONS (4)
  - Breast pain [None]
  - Galactorrhoea [None]
  - Breast enlargement [None]
  - Amenorrhoea [None]
